FAERS Safety Report 25460616 (Version 1)
Quarter: 2025Q2

REPORT INFORMATION
  Report Type: Spontaneous
  Country: GB (occurrence: GB)
  Receive Date: 20250620
  Receipt Date: 20250620
  Transmission Date: 20250716
  Serious: Yes (Life-Threatening, Hospitalization, Other)
  Sender: ELI LILLY AND COMPANY
  Company Number: None

PATIENT
  Age: 38 Year
  Sex: Female
  Weight: 138 kg

DRUGS (3)
  1. MOUNJARO [Suspect]
     Active Substance: TIRZEPATIDE
     Indication: Product used for unknown indication
     Route: 065
  2. DESOGESTREL [Concomitant]
     Active Substance: DESOGESTREL
     Indication: Product used for unknown indication
     Dates: start: 20250502, end: 20250502
  3. DOXYCYCLINE [Concomitant]
     Active Substance: DOXYCYCLINE
     Indication: Product used for unknown indication
     Dates: start: 20250414, end: 20250419

REACTIONS (5)
  - Pulmonary embolism [Recovering/Resolving]
  - Electrocardiogram ST-T segment abnormal [Recovering/Resolving]
  - Blood pressure systolic decreased [Recovering/Resolving]
  - Bradycardia [Recovering/Resolving]
  - Thrombolysis [Recovering/Resolving]
